FAERS Safety Report 6113641-0 (Version None)
Quarter: 2009Q1

REPORT INFORMATION
  Report Type: 
  Country: None (occurrence: None)
  Receive Date: 20090312
  Receipt Date: 20090304
  Transmission Date: 20090719
  Serious: Yes (Death)
  Sender: FDA-Public Use
  Company Number: CN-JNJFOC-20090300911

PATIENT
  Age: 4 Month
  Sex: Male

DRUGS (1)
  1. ANTUSS INFANTS' DECONGESTANT + COUGH [Suspect]
     Indication: NASOPHARYNGITIS

REACTIONS (1)
  - COMA [None]
